FAERS Safety Report 20650853 (Version 1)
Quarter: 2022Q1

REPORT INFORMATION
  Report Type: Spontaneous
  Country: DE (occurrence: DE)
  Receive Date: 20220329
  Receipt Date: 20220329
  Transmission Date: 20220423
  Serious: Yes (Other)
  Sender: FDA-Public Use
  Company Number: DE-TEVA-2022-DE-2021423

PATIENT
  Age: 32 Year
  Sex: Male

DRUGS (6)
  1. ACETYLCYSTEINE [Interacting]
     Active Substance: ACETYLCYSTEINE
     Indication: Dermatillomania
     Dosage: 600 MILLIGRAM DAILY; AS A SINGLE DAILY DOSE
     Route: 065
  2. ACETYLCYSTEINE [Interacting]
     Active Substance: ACETYLCYSTEINE
     Indication: Prader-Willi syndrome
     Dosage: 4200 MILLIGRAM DAILY; INCREASED UP TO 4200MG DAILY
     Route: 065
  3. ACETYLCYSTEINE [Interacting]
     Active Substance: ACETYLCYSTEINE
     Dosage: REDUCED DOSE
     Route: 065
  4. ACETYLCYSTEINE [Interacting]
     Active Substance: ACETYLCYSTEINE
     Dosage: 4200 MILLIGRAM DAILY;
     Route: 065
  5. RISPERIDONE [Interacting]
     Active Substance: RISPERIDONE
     Indication: Drug therapy
     Dosage: 2 MILLIGRAM DAILY;
     Route: 065
  6. MILNACIPRAN [Interacting]
     Active Substance: MILNACIPRAN
     Indication: Drug therapy
     Dosage: 50 MILLIGRAM DAILY;
     Route: 065

REACTIONS (5)
  - Infection [Unknown]
  - Dermatillomania [Unknown]
  - Prader-Willi syndrome [Unknown]
  - Drug ineffective [Unknown]
  - Drug interaction [Unknown]
